FAERS Safety Report 24172278 (Version 3)
Quarter: 2025Q1

REPORT INFORMATION
  Report Type: Spontaneous
  Country: JP (occurrence: JP)
  Receive Date: 20240805
  Receipt Date: 20250123
  Transmission Date: 20250408
  Serious: Yes (Hospitalization, Other)
  Sender: AMGEN
  Company Number: JP-TAKEDA-2024TJP011389

PATIENT
  Age: 8 Decade
  Sex: Female
  Weight: 40.1 kg

DRUGS (7)
  1. VECTIBIX [Suspect]
     Active Substance: PANITUMUMAB
     Indication: Rectal cancer
     Dosage: 270 MILLIGRAM, Q2WEEKS
     Route: 065
     Dates: start: 20240507
  2. LEVOLEUCOVORIN CALCIUM [Suspect]
     Active Substance: LEVOLEUCOVORIN CALCIUM
     Indication: Rectal cancer
     Dosage: 260 MILLIGRAM, Q2WEEKS
     Route: 065
     Dates: start: 20240423, end: 20240521
  3. LEVOLEUCOVORIN CALCIUM [Suspect]
     Active Substance: LEVOLEUCOVORIN CALCIUM
     Route: 065
     Dates: start: 20240618, end: 20240618
  4. OXALIPLATIN [Suspect]
     Active Substance: OXALIPLATIN
     Indication: Rectal cancer
     Dosage: 110 MILLIGRAM, Q2WEEKS
     Route: 065
     Dates: start: 20240423, end: 20240521
  5. OXALIPLATIN [Suspect]
     Active Substance: OXALIPLATIN
     Route: 065
     Dates: start: 20240618, end: 20240618
  6. FLUOROURACIL [Suspect]
     Active Substance: FLUOROURACIL
     Indication: Rectal cancer
     Dosage: 16810 MILLIGRAM, Q2WEEKS
     Route: 065
     Dates: start: 20240423, end: 20240521
  7. FLUOROURACIL [Suspect]
     Active Substance: FLUOROURACIL
     Route: 065
     Dates: start: 20240618, end: 20240618

REACTIONS (6)
  - Stoma site abscess [Recovered/Resolved]
  - Gastrointestinal stoma necrosis [Recovered/Resolved]
  - Pigmentation disorder [Recovered/Resolved]
  - Dry skin [Recovered/Resolved]
  - Skin fissures [Recovered/Resolved]
  - Paronychia [Recovered/Resolved]

NARRATIVE: CASE EVENT DATE: 20240603
